FAERS Safety Report 6260674-X (Version None)
Quarter: 2009Q3

REPORT INFORMATION
  Report Type: 
  Country: None (occurrence: None)
  Receive Date: 20090706
  Receipt Date: 20090624
  Transmission Date: 20100115
  Serious: Yes (Hospitalization)
  Sender: FDA-Public Use
  Company Number: GXKR2009TR07300

PATIENT
  Age: 90 Year
  Sex: Male

DRUGS (1)
  1. CEFUROXIME AXETIL [Suspect]
     Dosage: INTRAMUSCULAR
     Route: 030

REACTIONS (5)
  - DYSPNOEA [None]
  - ECHOCARDIOGRAM ABNORMAL [None]
  - HYPERSENSITIVITY [None]
  - KOUNIS SYNDROME [None]
  - RASH PRURITIC [None]
